FAERS Safety Report 5398476-9 (Version None)
Quarter: 2007Q3

REPORT INFORMATION
  Report Type: 
  Country: None (occurrence: None)
  Receive Date: 20070726
  Receipt Date: 20070716
  Transmission Date: 20080115
  Serious: Yes (Hospitalization)
  Sender: FDA-Public Use
  Company Number: DE-ABBOTT-07P-062-0372839-00

PATIENT
  Sex: Female

DRUGS (11)
  1. ERYTHROMYCIN [Suspect]
     Indication: DRUG USE FOR UNKNOWN INDICATION
     Route: 048
     Dates: start: 20070621, end: 20070621
  2. ERYTHROMYCIN [Suspect]
  3. EUNERPAN [Suspect]
     Indication: DRUG USE FOR UNKNOWN INDICATION
     Route: 048
     Dates: start: 20070621, end: 20070621
  4. EUNERPAN [Suspect]
  5. IBUPROFEN [Suspect]
     Indication: DRUG USE FOR UNKNOWN INDICATION
     Route: 048
     Dates: start: 20070621, end: 20070621
  6. IBUPROFEN [Suspect]
  7. ACETAMINOPHEN [Suspect]
     Indication: DRUG USE FOR UNKNOWN INDICATION
     Route: 048
     Dates: start: 20070621, end: 20070621
  8. ACETAMINOPHEN [Suspect]
     Route: 048
     Dates: start: 20070628, end: 20070628
  9. ACETAMINOPHEN [Suspect]
  10. AMOXICILLIN [Suspect]
     Indication: DRUG USE FOR UNKNOWN INDICATION
     Route: 048
     Dates: start: 20070621, end: 20070621
  11. AMOXICILLIN [Suspect]

REACTIONS (11)
  - ABNORMAL BEHAVIOUR [None]
  - AGGRESSION [None]
  - DYSPHAGIA [None]
  - ENDOSCOPY UPPER GASTROINTESTINAL TRACT ABNORMAL [None]
  - EXTRAPYRAMIDAL DISORDER [None]
  - HAEMATEMESIS [None]
  - LARYNGOSPASM [None]
  - MUSCULOSKELETAL STIFFNESS [None]
  - OROPHARYNGEAL SPASM [None]
  - POISONING [None]
  - SUICIDE ATTEMPT [None]
